FAERS Safety Report 8158899-1 (Version None)
Quarter: 2012Q1

REPORT INFORMATION
  Report Type: 
  Country: None (occurrence: None)
  Receive Date: 20120223
  Receipt Date: 20120216
  Transmission Date: 20120608
  Serious: Yes (Death, Other)
  Sender: FDA-Public Use
  Company Number: BR-SANOFI-AVENTIS-2012SA010342

PATIENT
  Sex: Female

DRUGS (2)
  1. INSULIN [Concomitant]
  2. LANTUS [Suspect]
     Route: 065
     Dates: start: 20100101

REACTIONS (5)
  - DEATH [None]
  - HYPERHIDROSIS [None]
  - HYPOGLYCAEMIA [None]
  - LOSS OF CONSCIOUSNESS [None]
  - AMNESIA [None]
